FAERS Safety Report 8321451-9 (Version None)
Quarter: 2012Q2

REPORT INFORMATION
  Report Type: 
  Country: None (occurrence: None)
  Receive Date: 20120430
  Receipt Date: 20120430
  Transmission Date: 20120825
  Serious: No
  Sender: FDA-Public Use
  Company Number: None

PATIENT
  Age: 57 Year
  Sex: Male
  Weight: 102.05 kg

DRUGS (1)
  1. ORACEA [Suspect]
     Indication: ROSACEA
     Dosage: 1 -40 MG. TABLET-
     Route: 048
     Dates: start: 20120415, end: 20120427

REACTIONS (6)
  - RASH [None]
  - PAIN [None]
  - HEADACHE [None]
  - TENDERNESS [None]
  - SEBORRHOEA [None]
  - PAIN IN EXTREMITY [None]
